FAERS Safety Report 4904440-3 (Version None)
Quarter: 2006Q1

REPORT INFORMATION
  Report Type: 
  Country: None (occurrence: None)
  Receive Date: 20060208
  Receipt Date: 20050906
  Transmission Date: 20060701
  Serious: No
  Sender: FDA-Public Use
  Company Number: US-GLAXOSMITHKLINE-A0573142A

PATIENT
  Age: 49 Year
  Sex: Female

DRUGS (5)
  1. PAROXETINE HYDROCHLORIDE [Suspect]
     Indication: DEPRESSION
     Dosage: 40MG PER DAY
     Route: 048
     Dates: start: 20050101
  2. SYNTHROID [Concomitant]
  3. LIPITOR [Concomitant]
  4. PAXIL [Concomitant]
     Indication: DEPRESSION
     Route: 048
     Dates: end: 20050101
  5. PAXIL CR [Concomitant]
     Indication: DEPRESSION
     Dosage: 37.5MG UNKNOWN
     Route: 048

REACTIONS (5)
  - ABDOMINAL PAIN UPPER [None]
  - DIZZINESS [None]
  - HYPOAESTHESIA ORAL [None]
  - NAUSEA [None]
  - PARAESTHESIA [None]
